FAERS Safety Report 4716712-6 (Version None)
Quarter: 2005Q3

REPORT INFORMATION
  Report Type: 
  Country: None (occurrence: None)
  Receive Date: 20050714
  Receipt Date: 20050701
  Transmission Date: 20060218
  Serious: Yes (Death, Hospitalization)
  Sender: FDA-Public Use
  Company Number: HQWYE969905JUL05

PATIENT
  Age: 35 Year
  Sex: Male

DRUGS (1)
  1. MINOMYCIN (MINOCYCLINE, INJECTION) [Suspect]
     Indication: INFECTION
     Dates: start: 20010524

REACTIONS (12)
  - ALANINE AMINOTRANSFERASE INCREASED [None]
  - ARRHYTHMIA [None]
  - ASPARTATE AMINOTRANSFERASE INCREASED [None]
  - BLOOD LACTATE DEHYDROGENASE INCREASED [None]
  - GAMMA-GLUTAMYLTRANSFERASE INCREASED [None]
  - LYMPHADENITIS [None]
  - MYOCARDITIS [None]
  - NECROSIS [None]
  - PLATELET COUNT DECREASED [None]
  - RASH PRURITIC [None]
  - SUDDEN DEATH [None]
  - WHITE BLOOD CELL COUNT DECREASED [None]
